FAERS Safety Report 7306085-7 (Version None)
Quarter: 2011Q1

REPORT INFORMATION
  Report Type: 
  Country: None (occurrence: None)
  Receive Date: 20110222
  Receipt Date: 20110210
  Transmission Date: 20110831
  Serious: Yes (Hospitalization)
  Sender: FDA-Public Use
  Company Number: US-GENZYME-FABR-1001811

PATIENT
  Sex: Male

DRUGS (5)
  1. FABRAZYME [Suspect]
     Dosage: 25 MG, Q4W
     Route: 042
     Dates: start: 20091020, end: 20100301
  2. FABRAZYME [Suspect]
     Dosage: 1 MG/KG, Q2W
     Route: 042
     Dates: start: 20040203, end: 20090713
  3. FABRAZYME [Suspect]
     Dosage: 0.5 MG/KG, Q2W
     Route: 042
     Dates: start: 20090714, end: 20091019
  4. FABRAZYME [Suspect]
     Dosage: 25 MG, Q2W
     Route: 042
     Dates: start: 20100301, end: 20100301
  5. FABRAZYME [Suspect]
     Indication: FABRY'S DISEASE
     Dosage: 25 MG, Q3W
     Route: 042
     Dates: start: 20100301, end: 20100623

REACTIONS (1)
  - ADVERSE EVENT [None]
